FAERS Safety Report 5157715-X (Version None)
Quarter: 2006Q4

REPORT INFORMATION
  Report Type: 
  Country: None (occurrence: None)
  Receive Date: 20061116
  Receipt Date: 20061103
  Transmission Date: 20070319
  Serious: Yes (Other)
  Sender: FDA-Public Use
  Company Number: GXKR2006US07164

PATIENT
  Age: 68 Year
  Sex: Male

DRUGS (1)
  1. VERAPAMIL [Suspect]
     Indication: DRUG USE FOR UNKNOWN INDICATION
     Dosage: 1000 MG OVER A DAY, ORAL
     Route: 048

REACTIONS (3)
  - ACUTE MYOCARDIAL INFARCTION [None]
  - BRADYCARDIA [None]
  - OVERDOSE [None]
